FAERS Safety Report 9776062 (Version 1)
Quarter: 2013Q4

REPORT INFORMATION
  Report Type: Spontaneous
  Country: IT (occurrence: IT)
  Receive Date: 20131220
  Receipt Date: 20131220
  Transmission Date: 20140711
  Serious: Yes (Death)
  Sender: FDA-Public Use
  Company Number: PHHY2013IT148763

PATIENT
  Age: 33 Year
  Sex: Male

DRUGS (3)
  1. DIAMORPHINE HYDROCHLORIDE [Suspect]
     Route: 042
  2. CAFFEINE [Suspect]
  3. DEXTROMETHORPHAN [Interacting]

REACTIONS (2)
  - Drug interaction [Fatal]
  - Overdose [Fatal]
